FAERS Safety Report 14523449 (Version 1)
Quarter: 2018Q1

REPORT INFORMATION
  Report Type: Spontaneous
  Country: CA (occurrence: CA)
  Receive Date: 20180212
  Receipt Date: 20180212
  Transmission Date: 20180509
  Serious: Yes (Other)
  Sender: FDA-Public Use
  Company Number: CA-ASTRAZENECA-2018SE15940

PATIENT
  Age: 75 Year
  Sex: Female

DRUGS (19)
  1. ZOLEDRONIC ACID [Concomitant]
     Active Substance: ZOLEDRONIC ACID
     Dosage: Q3MONTHS
  2. M-ESLON [Concomitant]
     Active Substance: MORPHINE SULFATE
  3. SYMBICORT [Concomitant]
     Active Substance: BUDESONIDE\FORMOTEROL FUMARATE DIHYDRATE
  4. M-ESLON [Concomitant]
     Active Substance: MORPHINE SULFATE
  5. SALBUTAMOL [Concomitant]
     Active Substance: ALBUTEROL
  6. CLOBETASOL [Concomitant]
     Active Substance: CLOBETASOL
  7. THYROXIN [Concomitant]
     Active Substance: LEVOTHYROXINE
     Dosage: 1.0MG UNKNOWN
  8. MORPHINE SULFATE. [Concomitant]
     Active Substance: MORPHINE SULFATE
  9. LORAZEPAM. [Concomitant]
     Active Substance: LORAZEPAM
     Route: 048
  10. METOPROLOL. [Concomitant]
     Active Substance: METOPROLOL
  11. FASLODEX [Suspect]
     Active Substance: FULVESTRANT
     Route: 030
     Dates: start: 201712
  12. DANTRIUM [Concomitant]
     Active Substance: DANTROLENE SODIUM
  13. RESTASIS [Concomitant]
     Active Substance: CYCLOSPORINE
     Dosage: 1 QTT  TWO TIMES A DAY
  14. BETADERM [Concomitant]
     Active Substance: BETAMETHASONE VALERATE
     Dosage: EVERY 3RD DAY
  15. ANALOPRIL [Concomitant]
  16. PANTOPRAZOLE [Concomitant]
     Active Substance: PANTOPRAZOLE
  17. BUSCOPAN [Concomitant]
     Active Substance: BUTYLSCOPOLAMINE BROMIDE
  18. IBRANCE [Suspect]
     Active Substance: PALBOCICLIB
     Route: 048
     Dates: start: 20180119
  19. SERTRALINE [Concomitant]
     Active Substance: SERTRALINE HYDROCHLORIDE

REACTIONS (4)
  - Bone lesion [Unknown]
  - Diarrhoea [Unknown]
  - Drug ineffective [Unknown]
  - Asthenia [Unknown]

NARRATIVE: CASE EVENT DATE: 20180131
